FAERS Safety Report 21562671 (Version 1)
Quarter: 2022Q4

REPORT INFORMATION
  Report Type: Report from Study
  Country: DE (occurrence: DE)
  Receive Date: 20221107
  Receipt Date: 20221107
  Transmission Date: 20230112
  Serious: Yes (Hospitalization, Other)
  Sender: FDA-Public Use
  Company Number: DE-ABBVIE-22K-062-4429390-00

PATIENT
  Sex: Female

DRUGS (6)
  1. HUMIRA [Suspect]
     Active Substance: ADALIMUMAB
     Indication: Rheumatoid arthritis
     Dosage: ONSET WAS 2022
     Route: 058
  2. HUMIRA [Suspect]
     Active Substance: ADALIMUMAB
     Dosage: STRENGTH 40 MILLIGRAM
     Route: 058
     Dates: start: 2018, end: 202112
  3. HUMIRA [Suspect]
     Active Substance: ADALIMUMAB
     Dosage: STRENGTH 40 MILLIGRAM
     Route: 058
     Dates: start: 202112
  4. HUMIRA [Suspect]
     Active Substance: ADALIMUMAB
     Dosage: STRENGTH 40 MILLIGRAM
     Route: 058
  5. COVID-19 VACCINE NOS [Suspect]
     Active Substance: COVID-19 VACCINE NOS
     Indication: COVID-19 immunisation
     Dosage: TIME INTERVAL: 1 TOTAL: ONE IN ONCE
     Route: 030
     Dates: start: 2022, end: 2022
  6. PREDNISONE [Concomitant]
     Active Substance: PREDNISONE
     Indication: Rheumatoid arthritis
     Route: 048

REACTIONS (21)
  - Electrolyte imbalance [Recovered/Resolved]
  - Gastrointestinal disorder [Not Recovered/Not Resolved]
  - Body temperature increased [Recovered/Resolved]
  - Device issue [Unknown]
  - Needle issue [Unknown]
  - Histamine abnormal [Not Recovered/Not Resolved]
  - Histamine level increased [Unknown]
  - Chills [Recovered/Resolved]
  - Wrong technique in product usage process [Unknown]
  - C-reactive protein increased [Recovered/Resolved]
  - Musculoskeletal discomfort [Not Recovered/Not Resolved]
  - Peripheral swelling [Not Recovered/Not Resolved]
  - Erythema [Unknown]
  - Arrhythmia [Not Recovered/Not Resolved]
  - Rheumatoid arthritis [Not Recovered/Not Resolved]
  - Gastritis [Not Recovered/Not Resolved]
  - Histamine intolerance [Not Recovered/Not Resolved]
  - Unevaluable event [Not Recovered/Not Resolved]
  - Histamine abnormal [Not Recovered/Not Resolved]
  - Atrial fibrillation [Unknown]
  - Skin warm [Unknown]

NARRATIVE: CASE EVENT DATE: 20210101
